FAERS Safety Report 4668271-4 (Version None)
Quarter: 2005Q2

REPORT INFORMATION
  Report Type: 
  Country: None (occurrence: None)
  Receive Date: 20050523
  Receipt Date: 20040831
  Transmission Date: 20051028
  Serious: Yes (Other)
  Sender: FDA-Public Use
  Company Number: PHEH2004US09443

PATIENT
  Age: 60 Year
  Sex: Male

DRUGS (5)
  1. AREDIA [Suspect]
     Indication: MULTIPLE MYELOMA
     Dosage: 90 MG MONTHLY
     Dates: start: 20040209, end: 20040813
  2. ADRIAMYCIN PFS [Concomitant]
  3. VINCRISTINE [Concomitant]
     Dates: start: 20030801, end: 20040801
  4. DECADRON [Concomitant]
     Dosage: MONTHLY
  5. ZOMETA [Suspect]
     Indication: MULTIPLE MYELOMA
     Dosage: 4 MG MONTHLY
     Route: 042
     Dates: start: 20030806, end: 20040112

REACTIONS (1)
  - OSTEONECROSIS [None]
